FAERS Safety Report 5413949-8 (Version None)
Quarter: 2007Q3

REPORT INFORMATION
  Report Type: 
  Country: None (occurrence: None)
  Receive Date: 20070814
  Receipt Date: 20070810
  Transmission Date: 20080115
  Serious: No
  Sender: FDA-Public Use
  Company Number: US-BOEHRINGER INGELHEIM PHARMACEUTICALS, INC.-2007-BP-07486BP

PATIENT
  Age: 98 Year
  Sex: Male

DRUGS (4)
  1. FLOMAX [Suspect]
     Route: 048
  2. SAW PALMETTO [Concomitant]
  3. ATENOLOL [Concomitant]
     Indication: BLOOD PRESSURE
  4. LEVOXYL [Concomitant]

REACTIONS (7)
  - BLOOD PRESSURE DECREASED [None]
  - FALL [None]
  - HYPOTENSION [None]
  - MUSCULAR WEAKNESS [None]
  - PAIN [None]
  - SKELETAL INJURY [None]
  - VOMITING [None]
